FAERS Safety Report 8579801-4 (Version None)
Quarter: 2012Q3

REPORT INFORMATION
  Report Type: 
  Country: None (occurrence: None)
  Receive Date: 20120808
  Receipt Date: 20120731
  Transmission Date: 20120928
  Serious: Yes (Other)
  Sender: FDA-Public Use
  Company Number: US-JNJFOC-20120701858

PATIENT
  Sex: Female

DRUGS (7)
  1. TYLENOL [Suspect]
     Route: 065
  2. HYDROCODONE BITARTRATE [Suspect]
     Indication: MIGRAINE
     Route: 065
  3. MULTI-VITAMINS [Concomitant]
     Route: 065
  4. FOLIC ACID [Concomitant]
     Route: 065
  5. TOPAMAX [Suspect]
     Indication: CONVULSION
     Route: 048
     Dates: start: 20060401, end: 20111101
  6. TYLENOL [Suspect]
     Indication: HEADACHE
     Route: 065
  7. TOPAMAX [Suspect]
     Indication: MIGRAINE
     Route: 048
     Dates: start: 20060401, end: 20111101

REACTIONS (6)
  - PREMATURE DELIVERY [None]
  - FEELING ABNORMAL [None]
  - PARAESTHESIA [None]
  - DRUG INTOLERANCE [None]
  - MATERNAL EXPOSURE DURING PREGNANCY [None]
  - ACTIVITIES OF DAILY LIVING IMPAIRED [None]
